FAERS Safety Report 6509201-X (Version None)
Quarter: 2009Q4

REPORT INFORMATION
  Report Type: 
  Country: None (occurrence: None)
  Receive Date: 20091221
  Receipt Date: 20090611
  Transmission Date: 20100525
  Serious: No
  Sender: FDA-Public Use
  Company Number: US-TYCO HEALTHCARE/MALLINCKRODT-T200901188

PATIENT
  Age: 92 Year
  Sex: Male

DRUGS (6)
  1. ULTRA-TECHNEKOW [Suspect]
     Indication: SCAN
     Dosage: UNK, UNK
     Dates: start: 20090610, end: 20090610
  2. TECHNETIUM (99M TC) DTPA [Suspect]
     Indication: SCAN
     Dosage: UNK, SINGLE
     Dates: start: 20090610, end: 20090610
  3. TECHNETIUM 99M MAA [Suspect]
     Indication: SCAN
     Dosage: UNK, SINGLE
     Dates: start: 20090610, end: 20090610
  4. ASPIRIN [Concomitant]
  5. PLAVIX [Concomitant]
  6. LOPRESSOR [Concomitant]

REACTIONS (3)
  - DYSPNOEA [None]
  - HYPERSENSITIVITY [None]
  - WHEEZING [None]
